FAERS Safety Report 23844106 (Version 1)
Quarter: 2024Q2

REPORT INFORMATION
  Report Type: Spontaneous
  Country: US (occurrence: US)
  Receive Date: 20240510
  Receipt Date: 20240510
  Transmission Date: 20240716
  Serious: No
  Sender: FDA-Public Use
  Company Number: US-SA-SAC20240507000207

PATIENT
  Sex: Female

DRUGS (49)
  1. DUPIXENT [Suspect]
     Active Substance: DUPILUMAB
     Indication: Asthma
     Dosage: 300 MG, QOW
     Route: 058
  2. AMOXICILLIN [Concomitant]
     Active Substance: AMOXICILLIN
  3. BELBUCA [Concomitant]
     Active Substance: BUPRENORPHINE HYDROCHLORIDE
  4. BUSPIRONE HCL [Concomitant]
     Active Substance: BUSPIRONE HYDROCHLORIDE
  5. CARVEDILOL [Concomitant]
     Active Substance: CARVEDILOL
  6. COLESTIPOL HYDROCHLORIDE [Concomitant]
     Active Substance: COLESTIPOL HYDROCHLORIDE
  7. DICYCLOMINE [Concomitant]
     Active Substance: DICYCLOMINE HYDROCHLORIDE
  8. DULOXETINE HYDROCHLORIDE [Concomitant]
     Active Substance: DULOXETINE HYDROCHLORIDE
  9. ENBREL [Concomitant]
     Active Substance: BENZYL ALCOHOL\ETANERCEPT
  10. EPINEPHRINE [Concomitant]
     Active Substance: EPINEPHRINE
  11. ESOMEPRAZOLE [Concomitant]
     Active Substance: ESOMEPRAZOLE
  12. FAMOTIDINE [Concomitant]
     Active Substance: FAMOTIDINE
  13. IPRATROPIUM [Concomitant]
     Active Substance: IPRATROPIUM
  14. CYCLOBENZAPRINE [Concomitant]
     Active Substance: CYCLOBENZAPRINE
  15. JARDIANCE [Concomitant]
     Active Substance: EMPAGLIFLOZIN
  16. LORAZEPAM [Concomitant]
     Active Substance: LORAZEPAM
  17. MIRTAZAPINE [Concomitant]
     Active Substance: MIRTAZAPINE
  18. MONTELUKAST [Concomitant]
     Active Substance: MONTELUKAST SODIUM
  19. MOUNJARO [Concomitant]
     Active Substance: TIRZEPATIDE
  20. PREDNISONE [Concomitant]
     Active Substance: PREDNISONE
  21. PREGABALIN [Concomitant]
     Active Substance: PREGABALIN
  22. RAMELTEON [Concomitant]
     Active Substance: RAMELTEON
  23. TOPIRAMATE [Concomitant]
     Active Substance: TOPIRAMATE
  24. TRELEGY ELLIPTA [Concomitant]
     Active Substance: FLUTICASONE FUROATE\UMECLIDINIUM BROMIDE\VILANTEROL TRIFENATATE
  25. WARFARIN SODIUM [Concomitant]
     Active Substance: WARFARIN SODIUM
  26. ALBUTEROL SULFATE [Concomitant]
     Active Substance: ALBUTEROL SULFATE
  27. AZATHIOPRINE [Concomitant]
     Active Substance: AZATHIOPRINE
  28. BUDESONIDE [Concomitant]
     Active Substance: BUDESONIDE
  29. DULERA [Concomitant]
     Active Substance: FORMOTEROL FUMARATE DIHYDRATE\MOMETASONE FUROATE
  30. EMGALITY [Concomitant]
     Active Substance: GALCANEZUMAB-GNLM
  31. ENTRESTO [Concomitant]
     Active Substance: SACUBITRIL\VALSARTAN
  32. FLUTICASONE [Concomitant]
     Active Substance: FLUTICASONE
  33. FORMOTEROL FUMARATE [Concomitant]
     Active Substance: FORMOTEROL FUMARATE
  34. FUROSEMIDE [Concomitant]
     Active Substance: FUROSEMIDE
  35. HYDROXYZINE [Concomitant]
     Active Substance: HYDROXYZINE HYDROCHLORIDE
  36. NUCYNTA ER [Concomitant]
     Active Substance: TAPENTADOL HYDROCHLORIDE
  37. PERFOROMIST [Concomitant]
     Active Substance: FORMOTEROL FUMARATE DIHYDRATE
  38. POTASSIUM CHLORIDE [Concomitant]
     Active Substance: POTASSIUM CHLORIDE
  39. RINVOQ [Concomitant]
     Active Substance: UPADACITINIB
  40. TORSEMIDE [Concomitant]
     Active Substance: TORSEMIDE
  41. UBRELVY [Concomitant]
     Active Substance: UBROGEPANT
  42. VALACYCLOVIR [Concomitant]
     Active Substance: VALACYCLOVIR HYDROCHLORIDE
  43. VALSARTAN [Concomitant]
     Active Substance: VALSARTAN
  44. CHLORTHALIDONE [Concomitant]
     Active Substance: CHLORTHALIDONE
  45. HYDROXYCHLOROQUINE [Concomitant]
     Active Substance: HYDROXYCHLOROQUINE
  46. NORETHINDRONE [Concomitant]
     Active Substance: NORETHINDRONE
  47. NUCYNTA [Concomitant]
     Active Substance: TAPENTADOL HYDROCHLORIDE
  48. PREDNISONE [Concomitant]
     Active Substance: PREDNISONE
  49. SPIRONOLACTONE [Concomitant]
     Active Substance: SPIRONOLACTONE

REACTIONS (8)
  - Depression [Unknown]
  - Anxiety [Unknown]
  - Disturbance in attention [Unknown]
  - Fatigue [Unknown]
  - Decreased appetite [Unknown]
  - Asthenia [Unknown]
  - Mobility decreased [Unknown]
  - Insomnia [Unknown]
